FAERS Safety Report 12464723 (Version 1)
Quarter: 2016Q2

REPORT INFORMATION
  Report Type: Report from Study
  Country: FR (occurrence: FR)
  Receive Date: 20160614
  Receipt Date: 20160614
  Transmission Date: 20160815
  Serious: Yes (Death, Other)
  Sender: FDA-Public Use
  Company Number: FR-CELGENEUS-FRA-2016021069

PATIENT

DRUGS (2)
  1. AZACITIDINE INJECTABLE [Suspect]
     Active Substance: AZACITIDINE
     Indication: MYELODYSPLASTIC SYNDROME
     Dosage: 75 MILLIGRAM/SQ. METER
     Route: 058
  2. EPOETIN BETA [Concomitant]
     Active Substance: ERYTHROPOIETIN
     Indication: MYELODYSPLASTIC SYNDROME
     Route: 058

REACTIONS (15)
  - Renal cancer [Unknown]
  - Febrile bone marrow aplasia [Unknown]
  - Cytopenia [Unknown]
  - Myelodysplastic syndrome [Unknown]
  - Lung infection [Unknown]
  - Pancreatic carcinoma [Unknown]
  - Pancytopenia [Unknown]
  - Adverse drug reaction [Unknown]
  - Acute myeloid leukaemia [Unknown]
  - Pleural infection [Unknown]
  - Death [Fatal]
  - Pneumonitis [Unknown]
  - Febrile neutropenia [Unknown]
  - Treatment failure [Unknown]
  - No therapeutic response [Unknown]
